FAERS Safety Report 9255637 (Version 3)
Quarter: 2013Q2

REPORT INFORMATION
  Report Type: Spontaneous
  Country: JP (occurrence: JP)
  Receive Date: 20130425
  Receipt Date: 20130625
  Transmission Date: 20140414
  Serious: Yes (Other)
  Sender: FDA-Public Use
  Company Number: JP-GLAXOSMITHKLINE-B0886336A

PATIENT
  Age: 82 Year
  Sex: Female
  Weight: 51 kg

DRUGS (3)
  1. VALTREX [Suspect]
     Indication: HERPES ZOSTER
     Dosage: 1000MG THREE TIMES PER DAY
     Route: 048
     Dates: start: 20130415, end: 20130418
  2. FLOMOX [Concomitant]
     Indication: INFECTION PROPHYLAXIS
     Dosage: 100MG THREE TIMES PER DAY
     Route: 048
     Dates: start: 20130415, end: 20130418
  3. FUCIDIN [Concomitant]
     Route: 061
     Dates: start: 20130415

REACTIONS (2)
  - Delirium [Recovered/Resolved]
  - Faecal incontinence [Recovered/Resolved]
